FAERS Safety Report 9297093 (Version 1)
Quarter: 2013Q2

REPORT INFORMATION
  Report Type: Spontaneous
  Country: US (occurrence: US)
  Receive Date: 20130520
  Receipt Date: 20130520
  Transmission Date: 20140414
  Serious: No
  Sender: FDA-Public Use
  Company Number: US-009507513-1305USA009719

PATIENT
  Sex: Female

DRUGS (1)
  1. JANUVIA [Suspect]
     Dosage: 100 MG, QAM
     Route: 048

REACTIONS (3)
  - Drug ineffective [Unknown]
  - Blood glucose fluctuation [Unknown]
  - Feeling abnormal [Unknown]
